FAERS Safety Report 16364559 (Version 3)
Quarter: 2019Q3

REPORT INFORMATION
  Report Type: Spontaneous
  Country: DK (occurrence: DK)
  Receive Date: 20190528
  Receipt Date: 20190824
  Transmission Date: 20191004
  Serious: Yes (Death, Life-Threatening, Hospitalization, Other)
  Sender: FDA-Public Use
  Company Number: DK-CELLTRION INC.-2019DK021446

PATIENT

DRUGS (3)
  1. INFLIXIMAB (UNKNOWN) [Suspect]
     Active Substance: INFLIXIMAB
     Dosage: 3 MG/KG
     Route: 058
     Dates: start: 20161028, end: 20161117
  2. INFLIXIMAB (UNKNOWN) [Suspect]
     Active Substance: INFLIXIMAB
     Indication: SARCOIDOSIS
     Dosage: 3 MG/KG
     Route: 042
  3. ETOPOSIDE. [Concomitant]
     Active Substance: ETOPOSIDE
     Indication: CHEMOTHERAPY
     Dosage: UNK

REACTIONS (9)
  - Pancytopenia [Unknown]
  - Product use issue [Unknown]
  - Multiple organ dysfunction syndrome [Fatal]
  - Haemophagocytic lymphohistiocytosis [Fatal]
  - Visceral leishmaniasis [Not Recovered/Not Resolved]
  - Retroperitoneal haemorrhage [Not Recovered/Not Resolved]
  - Epstein-Barr virus infection [Not Recovered/Not Resolved]
  - Off label use [Unknown]
  - Product use in unapproved indication [Unknown]

NARRATIVE: CASE EVENT DATE: 20161123
